FAERS Safety Report 5833522-7 (Version None)
Quarter: 2008Q3

REPORT INFORMATION
  Report Type: 
  Country: None (occurrence: None)
  Receive Date: 20080804
  Receipt Date: 20080804
  Transmission Date: 20090109
  Serious: Yes (Hospitalization)
  Sender: FDA-Public Use
  Company Number: None

PATIENT
  Age: 25 Year
  Sex: Female
  Weight: 55.2481 kg

DRUGS (1)
  1. BUTORPHANOL 2 MG/ML [Suspect]

REACTIONS (2)
  - CONVULSION [None]
  - HEADACHE [None]
